FAERS Safety Report 22771459 (Version 2)
Quarter: 2024Q1

REPORT INFORMATION
  Report Type: Report from Study
  Country: US (occurrence: US)
  Receive Date: 20230801
  Receipt Date: 20240222
  Transmission Date: 20240409
  Serious: Yes (Other)
  Sender: FDA-Public Use
  Company Number: US-ABBVIE-5283459

PATIENT
  Sex: Female
  Weight: 52 kg

DRUGS (2)
  1. HUMIRA [Suspect]
     Active Substance: ADALIMUMAB
     Indication: Crohn^s disease
     Route: 058
     Dates: start: 20221019, end: 20230504
  2. PROTONIX [Concomitant]
     Active Substance: PANTOPRAZOLE SODIUM
     Indication: Product used for unknown indication
     Route: 048
     Dates: start: 202205

REACTIONS (8)
  - Altered visual depth perception [Unknown]
  - Eye injury [Recovered/Resolved]
  - Blindness [Recovering/Resolving]
  - Thrombosis [Recovered/Resolved]
  - Cerebrovascular accident [Recovered/Resolved]
  - Nasopharyngitis [Unknown]
  - Vision blurred [Recovering/Resolving]
  - Cerebral ischaemia [Unknown]

NARRATIVE: CASE EVENT DATE: 20230101
